FAERS Safety Report 21941663 (Version 1)
Quarter: 2023Q1

REPORT INFORMATION
  Report Type: Report from Study
  Country: US (occurrence: US)
  Receive Date: 20230202
  Receipt Date: 20230202
  Transmission Date: 20230417
  Serious: No
  Sender: FDA-Public Use
  Company Number: US-EXELIXIS-CABO-22055281

PATIENT
  Age: 66 Year
  Sex: Male
  Weight: 62.707 kg

DRUGS (2)
  1. CABOMETYX [Suspect]
     Active Substance: CABOZANTINIB S-MALATE
     Indication: Renal cancer
     Dosage: 60 MG, QD
     Route: 048
     Dates: start: 20220805
  2. TRIAMCINOLONE [Concomitant]
     Active Substance: TRIAMCINOLONE
     Dosage: UNK

REACTIONS (9)
  - Adverse drug reaction [Unknown]
  - Oral candidiasis [Unknown]
  - Blister [Unknown]
  - Swollen tongue [Unknown]
  - Tongue blistering [Unknown]
  - Pruritus [Recovering/Resolving]
  - Alopecia [Unknown]
  - Glossodynia [Unknown]
  - Red blood cell count decreased [Unknown]

NARRATIVE: CASE EVENT DATE: 20220801
